FAERS Safety Report 16678471 (Version 1)
Quarter: 2019Q3

REPORT INFORMATION
  Report Type: Spontaneous
  Country: US (occurrence: US)
  Receive Date: 20190806
  Receipt Date: 20190806
  Transmission Date: 20191004
  Serious: No
  Sender: FDA-Public Use
  Company Number: None

PATIENT
  Age: 51 Year
  Sex: Female
  Weight: 78.75 kg

DRUGS (8)
  1. VIIBRYD [Suspect]
     Active Substance: VILAZODONE HYDROCHLORIDE
     Indication: ANXIETY
     Dosage: ?          QUANTITY:1 CAPSULE(S);?
     Route: 048
     Dates: start: 20190613, end: 20190720
  2. LISINOPRIL. [Concomitant]
     Active Substance: LISINOPRIL
  3. VIIBRYD [Suspect]
     Active Substance: VILAZODONE HYDROCHLORIDE
     Indication: OBSESSIVE-COMPULSIVE DISORDER
     Dosage: ?          QUANTITY:1 CAPSULE(S);?
     Route: 048
     Dates: start: 20190613, end: 20190720
  4. JANUVIA [Concomitant]
     Active Substance: SITAGLIPTIN PHOSPHATE
  5. MIRTAZAPINE. [Concomitant]
     Active Substance: MIRTAZAPINE
  6. CLOMIPRAMINE [Suspect]
     Active Substance: CLOMIPRAMINE
     Indication: OBSESSIVE-COMPULSIVE DISORDER
     Dosage: ?          QUANTITY:1 TABLET(S);?           THERAPY ONGOING: Y
     Dates: start: 20190722, end: 20190806
  7. SINGULAIR [Concomitant]
     Active Substance: MONTELUKAST SODIUM
  8. CLOMIPRAMINE [Suspect]
     Active Substance: CLOMIPRAMINE
     Indication: ANXIETY
     Dosage: ?          QUANTITY:1 TABLET(S);?           THERAPY ONGOING: Y
     Dates: start: 20190722, end: 20190806

REACTIONS (3)
  - Hyperhidrosis [None]
  - Memory impairment [None]
  - Insomnia [None]

NARRATIVE: CASE EVENT DATE: 20190805
